FAERS Safety Report 25061459 (Version 1)
Quarter: 2025Q1

REPORT INFORMATION
  Report Type: Spontaneous
  Country: US (occurrence: US)
  Receive Date: 20250311
  Receipt Date: 20250311
  Transmission Date: 20250409
  Serious: Yes (Hospitalization, Other)
  Sender: JOHNSON AND JOHNSON
  Company Number: US-JNJFOC-20250281208

PATIENT
  Sex: Female

DRUGS (1)
  1. CARVYKTI [Suspect]
     Active Substance: CILTACABTAGENE AUTOLEUCEL
     Indication: Plasma cell myeloma
     Route: 065

REACTIONS (6)
  - Cytokine release syndrome [Unknown]
  - Seizure [Unknown]
  - Plasma cell myeloma [Unknown]
  - Hospitalisation [Unknown]
  - Pain [Unknown]
  - Confusional state [Unknown]
